FAERS Safety Report 11472556 (Version 1)
Quarter: 2015Q3

REPORT INFORMATION
  Report Type: Spontaneous
  Country: US (occurrence: US)
  Receive Date: 20150908
  Receipt Date: 20150908
  Transmission Date: 20151125
  Serious: No
  Sender: FDA-Public Use
  Company Number: US-GLAXOSMITHKLINE-US2015125615

PATIENT
  Age: 55 Year
  Sex: Female

DRUGS (2)
  1. SORIATANE [Suspect]
     Active Substance: ACITRETIN
     Indication: PSORIASIS
  2. SORIATANE [Suspect]
     Active Substance: ACITRETIN
     Indication: LACERATION
     Route: 048
     Dates: start: 201506

REACTIONS (9)
  - Fatigue [Recovering/Resolving]
  - Myalgia [Recovering/Resolving]
  - Skin exfoliation [Not Recovered/Not Resolved]
  - Chapped lips [Recovered/Resolved]
  - Dry mouth [Recovered/Resolved]
  - Psoriasis [Not Recovered/Not Resolved]
  - Sticky skin [Recovered/Resolved]
  - Nail injury [Not Recovered/Not Resolved]
  - Alopecia [Not Recovered/Not Resolved]

NARRATIVE: CASE EVENT DATE: 201506
